FAERS Safety Report 4440073-3 (Version None)
Quarter: 2004Q3

REPORT INFORMATION
  Report Type: 
  Country: None (occurrence: None)
  Receive Date: 20040902
  Receipt Date: 20040826
  Transmission Date: 20050211
  Serious: Yes (Other)
  Sender: FDA-Public Use
  Company Number: AU-GLAXOSMITHKLINE-B0344111A

PATIENT
  Sex: Male

DRUGS (1)
  1. ZYBAN [Suspect]
     Indication: SMOKING CESSATION THERAPY
     Dates: start: 20040823, end: 20040827

REACTIONS (3)
  - HALLUCINATION [None]
  - SENSATION OF PRESSURE [None]
  - TINNITUS [None]
